FAERS Safety Report 20813176 (Version 3)
Quarter: 2022Q2

REPORT INFORMATION
  Report Type: Report from Study
  Country: US (occurrence: US)
  Receive Date: 20220511
  Receipt Date: 20220617
  Transmission Date: 20220721
  Serious: Yes (Other)
  Sender: FDA-Public Use
  Company Number: US-ORGANON-O2205USA000672

PATIENT
  Age: 22 Year
  Sex: Female
  Weight: 70.748 kg

DRUGS (1)
  1. IMPLANON [Suspect]
     Active Substance: ETONOGESTREL
     Dosage: 68 MILLIGRAM, 1 IMPLANT, LEFT ARM
     Route: 059
     Dates: start: 20220506

REACTIONS (3)
  - Device expulsion [Recovered/Resolved]
  - Complication associated with device [Unknown]
  - No adverse event [Unknown]

NARRATIVE: CASE EVENT DATE: 20220506
